FAERS Safety Report 9961030 (Version 1)
Quarter: 2014Q1

REPORT INFORMATION
  Report Type: Report from Study
  Country: AR (occurrence: AR)
  Receive Date: 20140305
  Receipt Date: 20140305
  Transmission Date: 20141002
  Serious: Yes (Hospitalization, Other)
  Sender: FDA-Public Use
  Company Number: AR-ROCHE-1359254

PATIENT
  Age: 67 Year
  Sex: Male

DRUGS (1)
  1. XOLAIR [Suspect]
     Indication: HYPERSENSITIVITY
     Route: 058
     Dates: start: 201310

REACTIONS (5)
  - Coma [Unknown]
  - Pneumonia [Recovering/Resolving]
  - Decubitus ulcer [Unknown]
  - Urinary tract infection [Recovering/Resolving]
  - Cholelithiasis [Unknown]
